FAERS Safety Report 9850061 (Version 1)
Quarter: 2013Q4

REPORT INFORMATION
  Report Type: Spontaneous
  Country: US (occurrence: None)
  Receive Date: 20131226
  Receipt Date: 20131226
  Transmission Date: 20140711
  Serious: Yes (Other)
  Sender: FDA-Public Use
  Company Number: PHEH2013US017892

PATIENT
  Age: 19 Year
  Sex: Female

DRUGS (3)
  1. SIGNIFOR (PASIREOTIDE) INJECTION [Suspect]
     Indication: PITUITARY-DEPENDENT CUSHING^S SYNDROME
     Dosage: 0.9 MG/ML , BID , SUBCUTANEOUS
     Route: 058
  2. METFORMIN (METFORMIN) [Concomitant]
  3. ZOFRAN (ONDANSETRON HYDROCHLORIDE) [Concomitant]

REACTIONS (3)
  - Electrocardiogram QT prolonged [None]
  - Migraine [None]
  - Nausea [None]
